FAERS Safety Report 9189243 (Version 1)
Quarter: 2013Q1

REPORT INFORMATION
  Report Type: Spontaneous
  Country: US (occurrence: None)
  Receive Date: 20130321
  Receipt Date: 20130321
  Transmission Date: 20140127
  Serious: Yes (Other)
  Sender: FDA-Public Use
  Company Number: None

PATIENT
  Age: 44 Year
  Sex: Male
  Weight: 95.71 kg

DRUGS (1)
  1. ESCITALOPRAM [Suspect]
     Indication: POST CONCUSSION SYNDROME
     Dosage: 10 MG  1X DAY  PO
     Route: 048
     Dates: start: 20120415, end: 20120422

REACTIONS (6)
  - Post concussion syndrome [None]
  - Disease recurrence [None]
  - Drug withdrawal syndrome [None]
  - Product substitution issue [None]
  - Drug ineffective [None]
  - Product formulation issue [None]
